FAERS Safety Report 10094762 (Version 3)
Quarter: 2014Q2

REPORT INFORMATION
  Report Type: Spontaneous
  Country: FR (occurrence: None)
  Receive Date: 20140418
  Receipt Date: 20140613
  Transmission Date: 20141212
  Serious: Yes (Other)
  Sender: FDA-Public Use
  Company Number: 2014DEPFR00593

PATIENT
  Age: 20 Year
  Sex: Female

DRUGS (11)
  1. DEPOCYTE [Suspect]
     Indication: METASTASES TO MENINGES
     Route: 037
     Dates: start: 20140225, end: 20140225
  2. METHOTREXATE [Suspect]
     Indication: ACUTE LYMPHOCYTIC LEUKAEMIA
     Route: 037
     Dates: start: 20140225
  3. DEPO-MEDROL [Suspect]
     Indication: ACUTE LYMPHOCYTIC LEUKAEMIA
     Route: 037
     Dates: start: 20140225
  4. KIDROLASE [Suspect]
     Indication: ACUTE LYMPHOCYTIC LEUKAEMIA
     Dates: end: 201402
  5. PIPERACILLINE TAZOBACTAM [Suspect]
     Indication: FEBRILE BONE MARROW APLASIA
     Dosage: 4G/500MG (3 VIALS DAILY), INTRAVENOUS
     Route: 042
     Dates: start: 20140222, end: 20140309
  6. VALACICLOVIR [Suspect]
     Indication: PRODUCT USED FOR UNKNOWN INDICATION
     Route: 048
     Dates: start: 20140209, end: 20140308
  7. DUPHASTON [Suspect]
     Indication: PRODUCT USED FOR UNKNOWN INDICATION
     Route: 048
     Dates: start: 20140212, end: 20140308
  8. HUMALOG (INSULIN LISPRO) [Concomitant]
  9. LANTUS (INSULIN GLARGINE) [Concomitant]
  10. PRIMPERAN (METOCLOPRAMIDE HYDROCHLORIDE) [Concomitant]
  11. TRIMETHOPRIM SULFAMETHOXAZOLE (SULFAMETHOXAZOLE, TRIMETHOPRIM) [Concomitant]

REACTIONS (9)
  - Aphasia [None]
  - VIIth nerve paralysis [None]
  - Epilepsy [None]
  - Leukoencephalopathy [None]
  - Disturbance in attention [None]
  - Headache [None]
  - Toxicity to various agents [None]
  - Coma [None]
  - Facial asymmetry [None]
